FAERS Safety Report 12206584 (Version 1)
Quarter: 2016Q1

REPORT INFORMATION
  Report Type: Spontaneous
  Country: US (occurrence: None)
  Receive Date: 20160323
  Receipt Date: 20160323
  Transmission Date: 20160526
  Serious: Yes (Disabling, Other)
  Sender: FDA-Public Use
  Company Number: None

PATIENT
  Age: 19 Year
  Sex: Female
  Weight: 107.96 kg

DRUGS (3)
  1. MINERALS [Concomitant]
     Active Substance: MINERALS
  2. VITAMINS [Concomitant]
     Active Substance: VITAMINS
  3. MIRENA [Suspect]
     Active Substance: LEVONORGESTREL

REACTIONS (5)
  - Staphylococcal infection [None]
  - Hysterectomy [None]
  - Complication associated with device [None]
  - Menorrhagia [None]
  - Endometrial disorder [None]

NARRATIVE: CASE EVENT DATE: 20070623
